FAERS Safety Report 8365586-3 (Version None)
Quarter: 2012Q2

REPORT INFORMATION
  Report Type: 
  Country: None (occurrence: None)
  Receive Date: 20120516
  Receipt Date: 20120507
  Transmission Date: 20120825
  Serious: Yes (Life-Threatening, Hospitalization)
  Sender: FDA-Public Use
  Company Number: JP-MERCK-1203USA01283

PATIENT
  Age: 80 Year
  Sex: Female
  Weight: 40 kg

DRUGS (10)
  1. FOSAMAX [Suspect]
     Indication: OSTEOPOROSIS
     Route: 048
     Dates: end: 20110124
  2. LOXOPROFEN SODIUM [Suspect]
     Indication: SPINAL COMPRESSION FRACTURE
     Route: 048
     Dates: end: 20110124
  3. ALLOPURINOL [Concomitant]
     Route: 048
     Dates: end: 20110124
  4. ATENOLOL [Concomitant]
     Route: 048
     Dates: end: 20110124
  5. CALFALEAD [Concomitant]
     Route: 048
     Dates: end: 20110124
  6. SPIRONOLACTONE [Concomitant]
     Route: 048
     Dates: end: 20110124
  7. FOSAMAX [Suspect]
     Indication: SPINAL COMPRESSION FRACTURE
     Route: 048
     Dates: end: 20110124
  8. FERROUS CITRATE [Concomitant]
     Indication: IRON DEFICIENCY ANAEMIA
     Route: 048
     Dates: end: 20110124
  9. MICARDIS [Concomitant]
     Indication: HYPERTENSION
     Route: 048
     Dates: end: 20110124
  10. MUCOSTA [Concomitant]
     Route: 048
     Dates: end: 20110124

REACTIONS (3)
  - GASTRIC ULCER HAEMORRHAGE [None]
  - HYPOVOLAEMIC SHOCK [None]
  - OESOPHAGEAL ULCER HAEMORRHAGE [None]
